APPROVED DRUG PRODUCT: CLIMARA PRO
Active Ingredient: ESTRADIOL; LEVONORGESTREL
Strength: 0.045MG/24HR;0.015MG/24HR
Dosage Form/Route: FILM, EXTENDED RELEASE;TRANSDERMAL
Application: N021258 | Product #001
Applicant: BAYER HEALTHCARE PHARMACEUTICALS INC
Approved: Nov 21, 2003 | RLD: Yes | RS: Yes | Type: RX